FAERS Safety Report 5789238-9 (Version None)
Quarter: 2008Q2

REPORT INFORMATION
  Report Type: 
  Country: None (occurrence: None)
  Receive Date: 20080626
  Receipt Date: 20080110
  Transmission Date: 20081010
  Serious: No
  Sender: FDA-Public Use
  Company Number: US-ASTRAZENECA-2008UW00721

PATIENT
  Age: 84 Year
  Sex: Female

DRUGS (14)
  1. PULMICORT RESPULES [Suspect]
     Indication: ASTHMA
     Dosage: 0.5 MG/2 ML
     Route: 055
  2. DIAZEPAM [Concomitant]
  3. PROTONIX [Concomitant]
  4. NORVASC [Concomitant]
  5. CATAPRES [Concomitant]
  6. CYPRO [Concomitant]
  7. MECLIZINE [Concomitant]
  8. ANALPRAM [Concomitant]
  9. VICODIN [Concomitant]
  10. ELAVIL [Concomitant]
  11. LASIX [Concomitant]
  12. SEREVENT [Concomitant]
  13. COUMADIN [Concomitant]
  14. LOMOTIL [Concomitant]

REACTIONS (4)
  - COUGH [None]
  - INSOMNIA [None]
  - TREMOR [None]
  - WHEEZING [None]
